FAERS Safety Report 11621776 (Version 1)
Quarter: 2015Q4

REPORT INFORMATION
  Report Type: Spontaneous
  Country: FR (occurrence: FR)
  Receive Date: 20151013
  Receipt Date: 20151013
  Transmission Date: 20160304
  Serious: Yes (Other)
  Sender: FDA-Public Use
  Company Number: FR-ROCHE-1645065

PATIENT
  Age: 44 Year
  Sex: Female

DRUGS (8)
  1. AVASTIN [Suspect]
     Active Substance: BEVACIZUMAB
     Indication: OVARIAN EPITHELIAL CANCER
     Dosage: CYCLICAL ADMINISTRATION, 4 ADMINISTRATIONS
     Route: 041
     Dates: start: 20150622, end: 20150831
  2. AVASTIN [Suspect]
     Active Substance: BEVACIZUMAB
     Indication: METASTASES TO LYMPH NODES
  3. CISPLATINE [Suspect]
     Active Substance: CISPLATIN
     Indication: METASTASES TO LYMPH NODES
  4. CISPLATINE [Suspect]
     Active Substance: CISPLATIN
     Indication: OVARIAN EPITHELIAL CANCER
     Dosage: CYCLICAL ADMINISTRATION WITH 4 ADMINISTRATIONS
     Route: 041
     Dates: start: 20150622, end: 20150831
  5. EMEND [Suspect]
     Active Substance: APREPITANT
     Indication: OVARIAN EPITHELIAL CANCER
     Route: 048
     Dates: start: 20150622, end: 20150831
  6. GEMZAR [Suspect]
     Active Substance: GEMCITABINE HYDROCHLORIDE
     Indication: METASTASES TO LYMPH NODES
  7. EMEND [Suspect]
     Active Substance: APREPITANT
     Indication: METASTASES TO LYMPH NODES
  8. GEMZAR [Suspect]
     Active Substance: GEMCITABINE HYDROCHLORIDE
     Indication: OVARIAN EPITHELIAL CANCER
     Route: 041
     Dates: start: 20150622, end: 20150909

REACTIONS (1)
  - Cough [Not Recovered/Not Resolved]

NARRATIVE: CASE EVENT DATE: 20150701
